FAERS Safety Report 10365266 (Version 1)
Quarter: 2014Q3

REPORT INFORMATION
  Report Type: Spontaneous
  Country: US (occurrence: None)
  Receive Date: 20140805
  Receipt Date: 20140805
  Transmission Date: 20150326
  Serious: Yes (Hospitalization)
  Sender: FDA-Public Use
  Company Number: None

PATIENT
  Age: 42 Year

DRUGS (1)
  1. SOVALDI [Suspect]
     Active Substance: SOFOSBUVIR
     Dosage: 1 TABLET QD ORAL
     Route: 048
     Dates: start: 20140421

REACTIONS (2)
  - Blood potassium decreased [None]
  - Feeling abnormal [None]

NARRATIVE: CASE EVENT DATE: 20140717
